FAERS Safety Report 8105505-8 (Version None)
Quarter: 2012Q1

REPORT INFORMATION
  Report Type: 
  Country: None (occurrence: None)
  Receive Date: 20120201
  Receipt Date: 20120124
  Transmission Date: 20120608
  Serious: Yes (Other)
  Sender: FDA-Public Use
  Company Number: BR-PFIZER INC-2012021318

PATIENT
  Age: 26 Year
  Sex: Male

DRUGS (3)
  1. XALATAN [Suspect]
     Indication: INTRAOCULAR PRESSURE INCREASED
     Dosage: 3 UG, 1X/DAY (1 DROP EACH EYE, 1X/DAY)
     Route: 047
  2. XALATAN [Suspect]
     Dosage: UNK
     Dates: start: 20120124
  3. TRAVATAN [Concomitant]
     Indication: INTRAOCULAR PRESSURE INCREASED
     Dosage: ONE DROP IN EACH EYE ONCE A DAY
     Dates: start: 20080101

REACTIONS (1)
  - EYE DISORDER [None]
